FAERS Safety Report 18599017 (Version 1)
Quarter: 2020Q4

REPORT INFORMATION
  Report Type: Other
  Country: US (occurrence: US)
  Receive Date: 20201210
  Receipt Date: 20201210
  Transmission Date: 20210114
  Serious: Yes (Death, Other)
  Sender: FDA-Public Use
  Company Number: US-ACORDA-ACO_166806_2020

PATIENT
  Age: 77 Year
  Sex: Male

DRUGS (2)
  1. INBRIJA [Suspect]
     Active Substance: LEVODOPA
     Indication: PARKINSON^S DISEASE
     Dosage: 84 MILLIGRAM, BID, PRN, NOT TO EXCEED 5 DOSES A DAY
     Dates: start: 20200211, end: 20201122
  2. INBRIJA [Suspect]
     Active Substance: LEVODOPA
     Indication: ON AND OFF PHENOMENON

REACTIONS (2)
  - SARS-CoV-2 test positive [Unknown]
  - Death [Fatal]

NARRATIVE: CASE EVENT DATE: 20201123
